FAERS Safety Report 6573494-3 (Version None)
Quarter: 2010Q1

REPORT INFORMATION
  Report Type: 
  Country: None (occurrence: None)
  Receive Date: 20100208
  Receipt Date: 20100129
  Transmission Date: 20100710
  Serious: Yes (Other)
  Sender: FDA-Public Use
  Company Number: DE-AMGEN-KDL378008

PATIENT
  Sex: Female
  Weight: 59 kg

DRUGS (1)
  1. VECTIBIX [Suspect]
     Indication: COLORECTAL CANCER
     Route: 042
     Dates: start: 20091124, end: 20100115

REACTIONS (3)
  - BENIGN OVARIAN TUMOUR [None]
  - PRURITUS [None]
  - RASH [None]
